FAERS Safety Report 7194667-5 (Version None)
Quarter: 2010Q4

REPORT INFORMATION
  Report Type: 
  Country: None (occurrence: None)
  Receive Date: 20101223
  Receipt Date: 20100917
  Transmission Date: 20110411
  Serious: No
  Sender: FDA-Public Use
  Company Number: US-AMGEN-KDL439072

PATIENT

DRUGS (2)
  1. ENBREL [Suspect]
     Indication: PSORIATIC ARTHROPATHY
     Dosage: 50 MG, QWK
     Route: 058
     Dates: start: 20070101
  2. SULFASALAZINE [Concomitant]
     Dosage: 1500 MG, QD
     Route: 048

REACTIONS (6)
  - FALL [None]
  - IMPAIRED HEALING [None]
  - PSORIATIC ARTHROPATHY [None]
  - SINUSITIS [None]
  - TENDONITIS [None]
  - THERAPEUTIC RESPONSE DECREASED [None]
